FAERS Safety Report 4364341-9 (Version None)
Quarter: 2004Q2

REPORT INFORMATION
  Report Type: 
  Country: None (occurrence: None)
  Receive Date: 20040525
  Receipt Date: 20031216
  Transmission Date: 20050107
  Serious: Yes (Hospitalization, Other)
  Sender: FDA-Public Use
  Company Number: US-BRISTOL-MYERS SQUIBB COMPANY-12458220

PATIENT

DRUGS (4)
  1. CYCLOPHOSPHAMIDE [Suspect]
     Indication: BREAST CANCER
     Dates: start: 20031110, end: 20031110
  2. DOXORUBICIN HCL [Suspect]
     Indication: BREAST CANCER
  3. DEXRAZOXANE HCL [Suspect]
     Indication: BREAST CANCER
     Dates: start: 20031111, end: 20031111
  4. NEULASTA [Suspect]

REACTIONS (2)
  - SEPSIS [None]
  - THROMBOCYTOPENIA [None]
